FAERS Safety Report 7296088-3 (Version None)
Quarter: 2011Q1

REPORT INFORMATION
  Report Type: 
  Country: None (occurrence: None)
  Receive Date: 20110216
  Receipt Date: 20101206
  Transmission Date: 20110831
  Serious: No
  Sender: FDA-Public Use
  Company Number: US-ABBOTT-10P-163-0689720-00

PATIENT
  Sex: Female

DRUGS (3)
  1. VITAMIN B COMPLEX CAP [Concomitant]
     Indication: PRODUCT USED FOR UNKNOWN INDICATION
  2. SIMCOR [Suspect]
     Indication: PRODUCT USED FOR UNKNOWN INDICATION
     Dosage: DAILY AT NIGHT
     Dates: start: 20101101
  3. NASAL ALLERGY MEDICINE [Concomitant]
     Indication: PRODUCT USED FOR UNKNOWN INDICATION

REACTIONS (8)
  - FEELING HOT [None]
  - FATIGUE [None]
  - ABASIA [None]
  - FLUSHING [None]
  - MUSCULAR WEAKNESS [None]
  - INSOMNIA [None]
  - HYPOAESTHESIA [None]
  - TREMOR [None]
